FAERS Safety Report 11479359 (Version 3)
Quarter: 2015Q4

REPORT INFORMATION
  Report Type: Spontaneous
  Country: FR (occurrence: FR)
  Receive Date: 20150909
  Receipt Date: 20151002
  Transmission Date: 20160304
  Serious: Yes (Life-Threatening)
  Sender: FDA-Public Use
  Company Number: FR-ROCHE-1632036

PATIENT
  Age: 76 Year
  Sex: Male

DRUGS (12)
  1. CHLORAMINOPHENE [Concomitant]
     Active Substance: CHLORAMBUCIL
     Indication: CHRONIC LYMPHOCYTIC LEUKAEMIA
     Dosage: FOR 5 DAYS AT EACH CYCLE (FROM DAY 2 TO DAY 6)
     Route: 048
  2. PRAVASTATIN [Concomitant]
     Active Substance: PRAVASTATIN\PRAVASTATIN SODIUM
  3. KARDEGIC [Concomitant]
     Active Substance: ASPIRIN LYSINE
  4. METHYLPREDNISOLONE. [Concomitant]
     Active Substance: METHYLPREDNISOLONE
     Indication: PREMEDICATION
     Dosage: SINGLE INTAKE
     Route: 042
     Dates: start: 20150708, end: 20150708
  5. FOLIC ACID. [Concomitant]
     Active Substance: FOLIC ACID
  6. GARDENAL [Concomitant]
     Active Substance: PHENOBARBITAL
     Route: 065
  7. MABTHERA [Suspect]
     Active Substance: RITUXIMAB
     Indication: CHRONIC LYMPHOCYTIC LEUKAEMIA
     Dosage: SINGLE INTAKE
     Route: 042
     Dates: start: 20150708, end: 20150708
  8. AMLODIPINE [Concomitant]
     Active Substance: AMLODIPINE BESYLATE
  9. ENALAPRIL [Concomitant]
     Active Substance: ENALAPRIL
  10. PARACETAMOL [Concomitant]
     Active Substance: ACETAMINOPHEN
     Indication: PREMEDICATION
     Dosage: SINGLE INTAKE
     Route: 042
     Dates: start: 20150708, end: 20150708
  11. BISOCE [Concomitant]
     Active Substance: BISOPROLOL
     Route: 065
  12. POLARAMINE [Concomitant]
     Active Substance: DEXCHLORPHENIRAMINE MALEATE
     Indication: PREMEDICATION
     Route: 042
     Dates: start: 20150708, end: 20150708

REACTIONS (3)
  - Rash [Recovered/Resolved]
  - Anaphylactic shock [Recovered/Resolved]
  - Epilepsy [Recovered/Resolved]

NARRATIVE: CASE EVENT DATE: 20150708
